FAERS Safety Report 5162726-4 (Version None)
Quarter: 2006Q4

REPORT INFORMATION
  Report Type: 
  Country: None (occurrence: None)
  Receive Date: 20061201
  Receipt Date: 20060629
  Transmission Date: 20070319
  Serious: No
  Sender: FDA-Public Use
  Company Number: US-GLAXOSMITHKLINE-A0610770A

PATIENT
  Age: 46 Year
  Sex: Female
  Weight: 75.9 kg

DRUGS (2)
  1. AUGMENTIN XR [Suspect]
     Indication: EAR INFECTION
     Route: 048
     Dates: start: 20060627
  2. NO CONCURRENT MEDICATION [Concomitant]

REACTIONS (1)
  - DIARRHOEA [None]
